FAERS Safety Report 15259159 (Version 3)
Quarter: 2018Q3

REPORT INFORMATION
  Report Type: Spontaneous
  Country: JP (occurrence: JP)
  Receive Date: 20180809
  Receipt Date: 20180920
  Transmission Date: 20181010
  Serious: Yes (Hospitalization, Other)
  Sender: FDA-Public Use
  Company Number: JP-JNJFOC-20180710802

PATIENT
  Age: 85 Year
  Sex: Male
  Weight: 46.5 kg

DRUGS (3)
  1. ZYTIGA [Suspect]
     Active Substance: ABIRATERONE ACETATE
     Indication: HORMONE-REFRACTORY PROSTATE CANCER
     Route: 048
     Dates: start: 20180613, end: 20180627
  2. PREDNISOLONE. [Concomitant]
     Active Substance: PREDNISOLONE
     Indication: HORMONE-REFRACTORY PROSTATE CANCER
     Route: 048
     Dates: start: 20180613
  3. ZYTIGA [Suspect]
     Active Substance: ABIRATERONE ACETATE
     Indication: HORMONE-REFRACTORY PROSTATE CANCER
     Route: 048
     Dates: start: 20180629, end: 20180701

REACTIONS (8)
  - Adrenal insufficiency [Recovering/Resolving]
  - Off label use [Unknown]
  - Hypertension [Recovered/Resolved]
  - Decreased appetite [Unknown]
  - Spinal compression fracture [Recovering/Resolving]
  - Delirium [Unknown]
  - Prescribed underdose [Unknown]
  - Drug eruption [Unknown]

NARRATIVE: CASE EVENT DATE: 201806
